FAERS Safety Report 7407604-2 (Version None)
Quarter: 2011Q2

REPORT INFORMATION
  Report Type: 
  Country: None (occurrence: None)
  Receive Date: 20110404
  Receipt Date: 20110318
  Transmission Date: 20111010
  Serious: Yes (Life-Threatening)
  Sender: FDA-Public Use
  Company Number: 029642

PATIENT
  Age: 70 Year
  Sex: Female

DRUGS (5)
  1. CO-DYDRAMOL [Concomitant]
  2. METHOTREXATE [Concomitant]
  3. LANSOPRAZOLE [Concomitant]
  4. FOLIC ACID [Concomitant]
  5. CIMZIA [Suspect]
     Indication: RHEUMATOID ARTHRITIS
     Dosage: 200 MG 1X/2 WEEKS SUBCUTANEOUS
     Route: 058
     Dates: start: 20100526, end: 20100701

REACTIONS (4)
  - GALLBLADDER PERFORATION [None]
  - ISCHAEMIA [None]
  - GALLBLADDER DISORDER [None]
  - CHOLECYSTITIS INFECTIVE [None]
